FAERS Safety Report 6430665-4 (Version None)
Quarter: 2009Q4

REPORT INFORMATION
  Report Type: 
  Country: None (occurrence: None)
  Receive Date: 20091106
  Receipt Date: 20091102
  Transmission Date: 20100525
  Serious: Yes (Hospitalization)
  Sender: FDA-Public Use
  Company Number: B0601587A

PATIENT
  Age: 38 Year
  Sex: Female

DRUGS (2)
  1. AUGMENTIN '125' [Suspect]
     Indication: SINUSITIS
     Route: 048
     Dates: start: 20091001, end: 20091029
  2. CORTICOSTEROID [Concomitant]
     Indication: SINUSITIS
     Route: 065
     Dates: start: 20091001

REACTIONS (5)
  - DRUG PRESCRIBING ERROR [None]
  - FATIGUE [None]
  - GENERAL PHYSICAL HEALTH DETERIORATION [None]
  - HYPERSENSITIVITY [None]
  - RASH [None]
